FAERS Safety Report 19694168 (Version 1)
Quarter: 2021Q3

REPORT INFORMATION
  Report Type: Spontaneous
  Country: ZA (occurrence: ZA)
  Receive Date: 20210813
  Receipt Date: 20210813
  Transmission Date: 20211014
  Serious: Yes (Hospitalization)
  Sender: FDA-Public Use
  Company Number: ZA-NOVOPROD-836661

PATIENT
  Age: 60 Year
  Sex: Female

DRUGS (8)
  1. NOVOMIX 30 FLEXPEN [Suspect]
     Active Substance: INSULIN ASPART
     Indication: DIABETES MELLITUS
     Dosage: UNK
     Route: 058
  2. CARZIN [Concomitant]
     Active Substance: DOXAZOSIN MESYLATE
     Dosage: UNK MG
     Route: 048
  3. PURESIS [Concomitant]
     Active Substance: FUROSEMIDE
     Indication: DIURETIC THERAPY
     Dosage: 40 MG
     Route: 048
  4. GLUCOPHAGE XR [Concomitant]
     Active Substance: METFORMIN HYDROCHLORIDE
     Indication: DIABETES MELLITUS
     Dosage: 500MG
     Route: 048
  5. PLENISH?K [Concomitant]
     Active Substance: POTASSIUM CHLORIDE
     Indication: MINERAL SUPPLEMENTATION
     Dosage: 600 MG
     Route: 048
  6. CIPALAT [Concomitant]
     Active Substance: NIFEDIPINE
     Indication: HYPERTENSION
     Dosage: 60 MG
     Route: 048
  7. ONE ALPHA [Concomitant]
     Active Substance: ALFACALCIDOL
     Indication: VITAMIN D DEFICIENCY
     Dosage: 0.25 MG
     Route: 048
  8. DYNARB [METFORMIN HYDROCHLORIDE] [Concomitant]
     Indication: HYPERTENSION
     Dosage: 300 MG
     Route: 048

REACTIONS (1)
  - Abscess [Unknown]
